FAERS Safety Report 8172794-3 (Version None)
Quarter: 2012Q1

REPORT INFORMATION
  Report Type: 
  Country: None (occurrence: None)
  Receive Date: 20120229
  Receipt Date: 20120221
  Transmission Date: 20120608
  Serious: Yes (Other)
  Sender: FDA-Public Use
  Company Number: US-UCBSA-052136

PATIENT
  Age: 29 Year
  Sex: Female

DRUGS (6)
  1. LACOSAMIDE [Suspect]
     Route: 048
     Dates: start: 20111222
  2. PROMISEB [Concomitant]
  3. ORAL CONTRACEPTIVES [Concomitant]
  4. CARBATROL [Concomitant]
     Indication: CONVULSION
  5. LACOSAMIDE [Suspect]
     Indication: COMPLEX PARTIAL SEIZURES
     Route: 048
     Dates: end: 20120201
  6. CEPHALEXIN [Concomitant]

REACTIONS (1)
  - SINUS TACHYCARDIA [None]
